FAERS Safety Report 22594059 (Version 2)
Quarter: 2023Q2

REPORT INFORMATION
  Report Type: Spontaneous
  Country: JP (occurrence: JP)
  Receive Date: 20230613
  Receipt Date: 20230621
  Transmission Date: 20230721
  Serious: Yes (Other)
  Sender: FDA-Public Use
  Company Number: JP-BRISTOL-MYERS SQUIBB COMPANY-2023-082800

PATIENT
  Age: 52 Year
  Sex: Male

DRUGS (9)
  1. YERVOY [Suspect]
     Active Substance: IPILIMUMAB
     Indication: Malignant melanoma
     Route: 041
  2. OPDIVO [Suspect]
     Active Substance: NIVOLUMAB
     Indication: Malignant melanoma
  3. DABRAFENIB [Suspect]
     Active Substance: DABRAFENIB
     Indication: Malignant melanoma
  4. DABRAFENIB [Suspect]
     Active Substance: DABRAFENIB
  5. DABRAFENIB [Suspect]
     Active Substance: DABRAFENIB
  6. DABRAFENIB [Suspect]
     Active Substance: DABRAFENIB
  7. TRAMETINIB [Suspect]
     Active Substance: TRAMETINIB
     Indication: Malignant melanoma
  8. TRAMETINIB [Suspect]
     Active Substance: TRAMETINIB
  9. TRAMETINIB [Suspect]
     Active Substance: TRAMETINIB

REACTIONS (3)
  - Interstitial lung disease [Unknown]
  - Pyrexia [Unknown]
  - Uveitis [Unknown]
